FAERS Safety Report 16013559 (Version 2)
Quarter: 2019Q1

REPORT INFORMATION
  Report Type: Spontaneous
  Country: DE (occurrence: DE)
  Receive Date: 20190227
  Receipt Date: 20190320
  Transmission Date: 20190418
  Serious: Yes (Other)
  Sender: FDA-Public Use
  Company Number: DE-PROVELL PHARMACEUTICALS-2063278

PATIENT
  Age: 58 Year
  Sex: Female
  Weight: 51 kg

DRUGS (5)
  1. EUTHYROX [Suspect]
     Active Substance: LEVOTHYROXINE SODIUM
     Dates: start: 2018
  2. EUTHYROX [Suspect]
     Active Substance: LEVOTHYROXINE SODIUM
     Indication: THYROID DISORDER
     Dates: start: 201803
  3. ZINKOROTAT [Concomitant]
     Active Substance: ZINC OROTATE
  4. VIGANTOL OIL [Concomitant]
  5. EUTHYROX [Suspect]
     Active Substance: LEVOTHYROXINE SODIUM
     Dates: start: 2018

REACTIONS (11)
  - Alopecia [Recovering/Resolving]
  - Urinary hesitation [Recovering/Resolving]
  - Tooth infection [Recovering/Resolving]
  - Bladder sphincter atony [None]
  - Blood thyroid stimulating hormone abnormal [Not Recovered/Not Resolved]
  - Peripheral swelling [Recovering/Resolving]
  - C-reactive protein increased [Recovering/Resolving]
  - Urinary retention [Recovering/Resolving]
  - Thyroid pain [Recovering/Resolving]
  - Pain [Recovering/Resolving]
  - Joint swelling [Recovering/Resolving]

NARRATIVE: CASE EVENT DATE: 2018
